FAERS Safety Report 5664346-1 (Version None)
Quarter: 2008Q1

REPORT INFORMATION
  Report Type: 
  Country: None (occurrence: None)
  Receive Date: 20080314
  Receipt Date: 20080304
  Transmission Date: 20080703
  Serious: Yes (Other)
  Sender: FDA-Public Use
  Company Number: US-BAYER-200816077NA

PATIENT
  Age: 56 Year
  Sex: Female
  Weight: 88 kg

DRUGS (2)
  1. MAGNEVIST [Suspect]
     Indication: NUCLEAR MAGNETIC RESONANCE IMAGING
     Route: 042
     Dates: start: 20080304, end: 20080304
  2. BENADRYL [Concomitant]
     Route: 048
     Dates: start: 20080304, end: 20080304

REACTIONS (4)
  - BLOOD PRESSURE INCREASED [None]
  - ORAL PRURITUS [None]
  - THROAT IRRITATION [None]
  - URTICARIA [None]
